FAERS Safety Report 7701808-7 (Version None)
Quarter: 2011Q3

REPORT INFORMATION
  Report Type: 
  Country: None (occurrence: None)
  Receive Date: 20110822
  Receipt Date: 20110818
  Transmission Date: 20111222
  Serious: Yes (Hospitalization)
  Sender: FDA-Public Use
  Company Number: JP-EISAI INC-E2020-09304-SPO-JP

PATIENT
  Age: 85 Year
  Sex: Male
  Weight: 45 kg

DRUGS (4)
  1. ARICEPT [Suspect]
     Route: 048
     Dates: start: 20081121, end: 20110113
  2. TOLTERODINE TARTRATE [Concomitant]
     Route: 048
     Dates: start: 20080101
  3. ARICEPT [Suspect]
     Indication: DEMENTIA ALZHEIMER'S TYPE
     Route: 048
     Dates: start: 20081010, end: 20081120
  4. LIVALO [Concomitant]
     Indication: HYPERCHOLESTEROLAEMIA
     Route: 048
     Dates: start: 20070101

REACTIONS (2)
  - NEUROLEPTIC MALIGNANT SYNDROME [None]
  - BRONCHOPNEUMONIA [None]
